FAERS Safety Report 8522506-6 (Version None)
Quarter: 2012Q3

REPORT INFORMATION
  Report Type: 
  Country: None (occurrence: None)
  Receive Date: 20120719
  Receipt Date: 20120713
  Transmission Date: 20120928
  Serious: Yes (Hospitalization)
  Sender: FDA-Public Use
  Company Number: JP-B.I. PHARMACEUTICALS,INC./RIDGEFIELD-2012-BP-15532NB

PATIENT
  Age: 97 Year
  Sex: Female
  Weight: 36.5 kg

DRUGS (4)
  1. FERROUS FUMARATE [Concomitant]
     Dosage: 100 MG
     Route: 065
     Dates: end: 20120710
  2. PRADAXA [Suspect]
     Indication: ATRIAL FIBRILLATION
     Dosage: 110 MG
     Route: 048
     Dates: end: 20120710
  3. URITOS [Concomitant]
     Dosage: 0.1 MG
     Route: 065
     Dates: end: 20120710
  4. LANSOPRAZOLE [Concomitant]
     Dosage: 15 MG
     Route: 065
     Dates: end: 20120710

REACTIONS (2)
  - MELAENA [None]
  - DIVERTICULUM INTESTINAL [None]
